FAERS Safety Report 4985621-X (Version None)
Quarter: 2006Q2

REPORT INFORMATION
  Report Type: 
  Country: None (occurrence: None)
  Receive Date: 20060426
  Receipt Date: 20060426
  Transmission Date: 20061013
  Serious: Yes (Hospitalization)
  Sender: FDA-Public Use
  Company Number: None

PATIENT
  Age: 84 Year
  Sex: Male
  Weight: 108.4097 kg

DRUGS (3)
  1. DILTIAZEM [Suspect]
     Dates: start: 20050408, end: 20060327
  2. METOPROLOL 12.5 MG BID 3/27/06-1 DOSE [Suspect]
     Dosage: 1 DOSE
     Dates: start: 20060327
  3. CLONIDINE [Suspect]
     Dosage: 0.1 MG Q8H PRN  3 DOSES
     Dates: start: 20060327, end: 20060328

REACTIONS (2)
  - BRADYCARDIA [None]
  - HYPOTENSION [None]
